FAERS Safety Report 8616874-4 (Version None)
Quarter: 2012Q3

REPORT INFORMATION
  Report Type: 
  Country: None (occurrence: None)
  Receive Date: 20120823
  Receipt Date: 20120809
  Transmission Date: 20120928
  Serious: No
  Sender: FDA-Public Use
  Company Number: US-009507513-1208USA004805

PATIENT

DRUGS (1)
  1. ZIOPTAN [Suspect]
     Dosage: UNK
     Route: 031
     Dates: end: 20120805

REACTIONS (3)
  - ARTHRALGIA [None]
  - CHEST PAIN [None]
  - HEADACHE [None]
